FAERS Safety Report 25671826 (Version 3)
Quarter: 2025Q4

REPORT INFORMATION
  Report Type: Spontaneous
  Country: EU (occurrence: EU)
  Receive Date: 20250812
  Receipt Date: 20251105
  Transmission Date: 20260117
  Serious: Yes (Other)
  Sender: MYLAN
  Company Number: EU-MYLANLABS-2025M1067582

PATIENT
  Age: 53 Year
  Sex: Male

DRUGS (5)
  1. DARUNAVIR [Suspect]
     Active Substance: DARUNAVIR
     Indication: HIV infection
     Dosage: 800 MILLIGRAM, QD (1 DOSAGE FORM 1 DAY)
     Dates: start: 20250705, end: 20250726
  2. TENOFOVIR [Concomitant]
     Active Substance: TENOFOVIR
     Dosage: UNK
  3. EMTRICITABINE [Concomitant]
     Active Substance: EMTRICITABINE
     Dosage: UNK
  4. RITONAVIR [Concomitant]
     Active Substance: RITONAVIR
     Dosage: UNK
  5. Darunavir biogaran [Concomitant]
     Dosage: UNK

REACTIONS (5)
  - Product residue present [Recovered/Resolved]
  - Malabsorption [Recovered/Resolved]
  - Product substitution issue [Recovered/Resolved]
  - Product supply issue [Recovered/Resolved]
  - Treatment failure [Unknown]

NARRATIVE: CASE EVENT DATE: 20250701
